FAERS Safety Report 12811123 (Version 1)
Quarter: 2016Q4

REPORT INFORMATION
  Report Type: Spontaneous
  Country: US (occurrence: US)
  Receive Date: 20161005
  Receipt Date: 20161005
  Transmission Date: 20170207
  Serious: Yes (Other)
  Sender: FDA-Public Use
  Company Number: US-BAYER-2016-190732

PATIENT
  Age: 30 Year
  Sex: Female

DRUGS (4)
  1. DIFLUCAN [Concomitant]
     Active Substance: FLUCONAZOLE
  2. ESTRACE [Concomitant]
     Active Substance: ESTRADIOL
  3. FLAGYL [Concomitant]
     Active Substance: METRONIDAZOLE\METRONIDAZOLE HYDROCHLORIDE
  4. MIRENA [Suspect]
     Active Substance: LEVONORGESTREL
     Indication: CONTRACEPTION
     Dosage: 20 MCG/24HR, CONT
     Route: 015
     Dates: start: 20140609, end: 20151007

REACTIONS (9)
  - Uterine perforation [None]
  - Pain [None]
  - Device difficult to use [None]
  - Medical device discomfort [None]
  - Device breakage [None]
  - Complication of device removal [None]
  - Genital haemorrhage [None]
  - Vaginal discharge [None]
  - Dyspareunia [None]

NARRATIVE: CASE EVENT DATE: 2014
